FAERS Safety Report 5701009-8 (Version None)
Quarter: 2008Q2

REPORT INFORMATION
  Report Type: 
  Country: None (occurrence: None)
  Receive Date: 20080410
  Receipt Date: 20080403
  Transmission Date: 20081010
  Serious: Yes (Hospitalization)
  Sender: FDA-Public Use
  Company Number: CA-ASTRAZENECA-2008UW06317

PATIENT
  Age: 72 Year
  Sex: Female

DRUGS (2)
  1. CRESTOR [Suspect]
     Indication: HYPERCHOLESTEROLAEMIA
     Route: 048
     Dates: start: 20071201, end: 20080101
  2. PANTOPRAZOLE SODIUM [Concomitant]
     Indication: STOMACH DISCOMFORT
     Route: 048

REACTIONS (6)
  - ANAEMIA [None]
  - ARRHYTHMIA [None]
  - DYSPNOEA [None]
  - MYALGIA [None]
  - NAUSEA [None]
  - WEIGHT DECREASED [None]
